FAERS Safety Report 19489874 (Version 1)
Quarter: 2021Q3

REPORT INFORMATION
  Report Type: Report from Study
  Country: None (occurrence: US)
  Receive Date: 20210704
  Receipt Date: 20210704
  Transmission Date: 20211014
  Serious: Yes (Hospitalization)
  Sender: FDA-Public Use
  Company Number: US-ABBVIE-21K-163-3974635-00

PATIENT
  Sex: Male

DRUGS (1)
  1. IMBRUVICA [Suspect]
     Active Substance: IBRUTINIB
     Indication: LYMPHOCYTIC LEUKAEMIA
     Route: 048
     Dates: start: 201812, end: 20210501

REACTIONS (4)
  - Thrombosis [Unknown]
  - Arrhythmia [Unknown]
  - Mobility decreased [Unknown]
  - Appendicitis [Unknown]

NARRATIVE: CASE EVENT DATE: 2021
